FAERS Safety Report 4304303-0 (Version None)
Quarter: 2004Q1

REPORT INFORMATION
  Report Type: 
  Country: None (occurrence: None)
  Receive Date: 20040224
  Receipt Date: 20040209
  Transmission Date: 20041129
  Serious: Yes (Hospitalization)
  Sender: FDA-Public Use
  Company Number: PV04.038

PATIENT
  Age: 76 Year
  Sex: Female

DRUGS (1)
  1. PAROXETINE MESYLATE [Suspect]
     Dosage: 0.5 MG
     Dates: start: 20030703, end: 20030705

REACTIONS (2)
  - FRACTURE [None]
  - MALAISE [None]
